FAERS Safety Report 7770531-5 (Version None)
Quarter: 2011Q3

REPORT INFORMATION
  Report Type: 
  Country: None (occurrence: None)
  Receive Date: 20110922
  Receipt Date: 20101020
  Transmission Date: 20111222
  Serious: No
  Sender: FDA-Public Use
  Company Number: US-ASTRAZENECA-2010SE49659

PATIENT
  Age: 32 Year
  Sex: Female
  Weight: 122.5 kg

DRUGS (6)
  1. SEROQUEL [Suspect]
     Indication: BIPOLAR I DISORDER
     Route: 048
     Dates: start: 20100101, end: 20100101
  2. HYDROCODONE [Concomitant]
  3. SEROQUEL [Suspect]
     Route: 048
     Dates: start: 20100101
  4. SEROQUEL [Suspect]
     Indication: SLEEP DISORDER
     Route: 048
     Dates: start: 20100101, end: 20100101
  5. CLONAZEPAM [Concomitant]
  6. SEROQUEL [Suspect]
     Route: 048
     Dates: start: 20100101

REACTIONS (4)
  - DRUG INEFFECTIVE [None]
  - ANXIETY [None]
  - DRUG DOSE OMISSION [None]
  - VOMITING [None]
